FAERS Safety Report 7006518-X (Version None)
Quarter: 2010Q3

REPORT INFORMATION
  Report Type: 
  Country: None (occurrence: None)
  Receive Date: 20100921
  Receipt Date: 20100921
  Transmission Date: 20110219
  Serious: Yes (Other)
  Sender: FDA-Public Use
  Company Number: None

PATIENT
  Age: 63 Year
  Sex: Female

DRUGS (1)
  1. BETASERON [Suspect]
     Dosage: 0.25 MG EVERY OTHER DAY SQ
     Route: 058
     Dates: start: 20100811, end: 20100901

REACTIONS (6)
  - DYSPNOEA [None]
  - HYPERHIDROSIS [None]
  - MOOD ALTERED [None]
  - PALPITATIONS [None]
  - RASH ERYTHEMATOUS [None]
  - RASH PAPULAR [None]
